FAERS Safety Report 7059227-5 (Version None)
Quarter: 2010Q4

REPORT INFORMATION
  Report Type: 
  Country: None (occurrence: None)
  Receive Date: 20101025
  Receipt Date: 20101014
  Transmission Date: 20110411
  Serious: No
  Sender: FDA-Public Use
  Company Number: US-BIOGENIDEC-2010BI036337

PATIENT
  Sex: Male

DRUGS (1)
  1. TYSABRI [Suspect]
     Indication: MULTIPLE SCLEROSIS
     Route: 042
     Dates: start: 20081218, end: 20091210

REACTIONS (5)
  - ANAL SPHINCTER ATONY [None]
  - BLADDER DISORDER [None]
  - EMOTIONAL DISTRESS [None]
  - FAECAL INCONTINENCE [None]
  - FALL [None]
